FAERS Safety Report 15452405 (Version 3)
Quarter: 2018Q4

REPORT INFORMATION
  Report Type: Spontaneous
  Country: US (occurrence: US)
  Receive Date: 20181001
  Receipt Date: 20181112
  Transmission Date: 20190204
  Serious: Yes (Death)
  Sender: FDA-Public Use
  Company Number: US-PFIZER INC-2018394916

PATIENT
  Age: 69 Year
  Sex: Male

DRUGS (6)
  1. LYRICA [Suspect]
     Active Substance: PREGABALIN
     Indication: HERPES ZOSTER
     Dosage: 20 MG, 2X/DAY
     Dates: start: 20180501, end: 20180921
  2. CELLCEPT [MYCOPHENOLATE MOFETIL] [Concomitant]
     Dosage: UNK
     Dates: start: 20180207, end: 20180921
  3. LASILIX [FUROSEMIDE] [Concomitant]
     Dosage: UNK
     Dates: start: 20180130, end: 20180921
  4. CARDIZEM LA [Concomitant]
     Active Substance: DILTIAZEM HYDROCHLORIDE
     Dosage: UNK
     Dates: start: 20171205, end: 20180921
  5. PREDNISONE. [Concomitant]
     Active Substance: PREDNISONE
     Dosage: UNK
     Dates: start: 20180207, end: 20180921
  6. BACTRIM [Concomitant]
     Active Substance: SULFAMETHOXAZOLE\TRIMETHOPRIM
     Dosage: UNK
     Dates: start: 20180207, end: 20180921

REACTIONS (3)
  - Pneumonia [Fatal]
  - Sepsis [Fatal]
  - Scleroderma [Fatal]
